FAERS Safety Report 8414949-6 (Version None)
Quarter: 2012Q2

REPORT INFORMATION
  Report Type: 
  Country: None (occurrence: None)
  Receive Date: 20120601
  Receipt Date: 20120601
  Transmission Date: 20120825
  Serious: Yes (Hospitalization)
  Sender: FDA-Public Use
  Company Number: None

PATIENT
  Sex: Female
  Weight: 121.4 kg

DRUGS (1)
  1. CHANTIX 1 MG. UNKNOWN [Suspect]
     Indication: SMOKING CESSATION THERAPY
     Dosage: 1 MG. BID ORALLY
     Route: 048
     Dates: start: 20111101, end: 20120105

REACTIONS (1)
  - SUICIDAL IDEATION [None]
